FAERS Safety Report 9288524 (Version 2)
Quarter: 2013Q2

REPORT INFORMATION
  Report Type: Report from Study
  Country: BR (occurrence: BR)
  Receive Date: 20130514
  Receipt Date: 20130618
  Transmission Date: 20140414
  Serious: Yes (Other)
  Sender: FDA-Public Use
  Company Number: PHHY2013BR046717

PATIENT
  Age: 70 Year
  Sex: Female
  Weight: 72 kg

DRUGS (8)
  1. ACLASTA [Suspect]
     Indication: OSTEOPENIA
     Dosage: 5 MG, UNK
     Route: 042
     Dates: start: 201301
  2. SIMVASTATIN SANDOZ [Concomitant]
     Indication: BLOOD CHOLESTEROL INCREASED
     Dosage: UNK
     Route: 048
  3. RIVOTRIL [Concomitant]
     Indication: HYPOTONIA
     Dosage: UNK
  4. OMEPRAZOLE [Concomitant]
     Indication: ULCER
     Dosage: 2 TABLETS (40 MG) A DAY
     Route: 048
  5. OMEPRAZOLE [Concomitant]
     Indication: GASTRITIS
  6. CALCIUM D3                         /00944201/ [Concomitant]
     Indication: OSTEOPENIA
     Dosage: UNK UKN, UNK
     Route: 048
     Dates: start: 201302
  7. DEPURA [Concomitant]
     Indication: OSTEOPENIA
     Dosage: 10 DRP, A DAY
     Route: 048
  8. VITAMIN D NOS [Concomitant]
     Indication: OSTEOPENIA
     Dosage: UNK UKN, UNK
     Route: 048
     Dates: start: 201302

REACTIONS (8)
  - Dengue fever [Not Recovered/Not Resolved]
  - Asthenia [Not Recovered/Not Resolved]
  - Back pain [Recovering/Resolving]
  - Muscle spasms [Not Recovered/Not Resolved]
  - Thyroiditis [Not Recovered/Not Resolved]
  - Thyroid neoplasm [Not Recovered/Not Resolved]
  - Feeling abnormal [Not Recovered/Not Resolved]
  - Dizziness [Not Recovered/Not Resolved]
